FAERS Safety Report 12874054 (Version 1)
Quarter: 2016Q4

REPORT INFORMATION
  Report Type: Spontaneous
  Country: US (occurrence: US)
  Receive Date: 20161021
  Receipt Date: 20161021
  Transmission Date: 20170207
  Serious: No
  Sender: FDA-Public Use
  Company Number: US-BAYER-2016-196372

PATIENT
  Age: 58 Year
  Sex: Female
  Weight: 86.17 kg

DRUGS (1)
  1. ALEVE [Suspect]
     Active Substance: NAPROXEN SODIUM
     Indication: PAIN
     Dosage: TAKE 2 ALEVE TWICE A DAY SOMETIMES
     Route: 048

REACTIONS (5)
  - Product quality issue [Unknown]
  - Product use issue [Unknown]
  - Foreign body [Unknown]
  - Product taste abnormal [None]
  - Poor quality drug administered [None]
